FAERS Safety Report 12561107 (Version 2)
Quarter: 2016Q3

REPORT INFORMATION
  Report Type: Spontaneous
  Country: AR (occurrence: AR)
  Receive Date: 20160715
  Receipt Date: 20160801
  Transmission Date: 20161109
  Serious: Yes (Death, Life-Threatening, Hospitalization, Other)
  Sender: FDA-Public Use
  Company Number: AR-ABBVIE-16K-007-1674513-00

PATIENT
  Age: 50 Year
  Sex: Male

DRUGS (2)
  1. HUMIRA [Suspect]
     Active Substance: ADALIMUMAB
     Indication: PSORIATIC ARTHROPATHY
     Route: 058
  2. HUMIRA [Suspect]
     Active Substance: ADALIMUMAB
     Route: 058
     Dates: start: 20160524

REACTIONS (26)
  - Toxic epidermal necrolysis [Unknown]
  - Pyrexia [Unknown]
  - Chills [Unknown]
  - Oedema peripheral [Unknown]
  - Muscle spasms [Unknown]
  - Chest pain [Unknown]
  - Red blood cell sedimentation rate increased [Unknown]
  - Dyspnoea [Recovered/Resolved]
  - Sepsis [Fatal]
  - Dermatitis exfoliative [Unknown]
  - Nikolsky^s sign [Unknown]
  - Laboratory test abnormal [Unknown]
  - Psoriasis [Unknown]
  - Skin lesion [Unknown]
  - Anxiety [Unknown]
  - Anuria [Unknown]
  - Oral disorder [Not Recovered/Not Resolved]
  - Multiple organ dysfunction syndrome [Fatal]
  - Pustular psoriasis [Fatal]
  - Dyspnoea [Unknown]
  - Staphylococcus test positive [Not Recovered/Not Resolved]
  - Skin fissures [Unknown]
  - Pain of skin [Unknown]
  - Leukocytosis [Not Recovered/Not Resolved]
  - Anxiety [Recovered/Resolved]
  - Pyrexia [Unknown]

NARRATIVE: CASE EVENT DATE: 2016
